FAERS Safety Report 5016399-1 (Version None)
Quarter: 2006Q2

REPORT INFORMATION
  Report Type: 
  Country: None (occurrence: None)
  Receive Date: 20060602
  Receipt Date: 20060529
  Transmission Date: 20061013
  Serious: Yes (Other)
  Sender: FDA-Public Use
  Company Number: PHBS2006IE07757

PATIENT
  Age: 21 Year
  Sex: Female

DRUGS (2)
  1. MICROLITE [Concomitant]
  2. LAMISIL [Suspect]
     Route: 048
     Dates: start: 20060402, end: 20060411

REACTIONS (3)
  - ARTHRALGIA [None]
  - ARTHRITIS [None]
  - ERYTHEMA NODOSUM [None]
